FAERS Safety Report 8673989 (Version 2)
Quarter: 2012Q4

REPORT INFORMATION
  Report Type: 
  Country: JP (occurrence: JP)
  Receive Date: 20120719
  Receipt Date: 20121102
  Transmission Date: 20130627
  Serious: Yes (Hospitalization, Disabling)
  Sender: FDA-Public Use
  Company Number: JP-B.I. PHARMACEUTICALS,INC./RIDGEFIELD-2012-BP-15779NB

PATIENT

DRUGS (1)
  1. PRADAXA [Suspect]
     Dosage: 220 mg
     Route: 048

REACTIONS (1)
  - Cerebral infarction [Unknown]
